FAERS Safety Report 11881293 (Version 1)
Quarter: 2015Q4

REPORT INFORMATION
  Report Type: Spontaneous
  Country: US (occurrence: US)
  Receive Date: 20151231
  Receipt Date: 20151231
  Transmission Date: 20160305
  Serious: Yes (Other)
  Sender: FDA-Public Use
  Company Number: US-ROCHE-1686848

PATIENT
  Age: 68 Year
  Sex: Female

DRUGS (1)
  1. ESBRIET [Suspect]
     Active Substance: PIRFENIDONE
     Indication: IDIOPATHIC PULMONARY FIBROSIS
     Route: 048
     Dates: start: 20150702, end: 20151215

REACTIONS (4)
  - Haemorrhage [Unknown]
  - Haemoglobin decreased [Recovering/Resolving]
  - Haemorrhoids [Unknown]
  - Diarrhoea [Recovered/Resolved]
